FAERS Safety Report 9262923 (Version 2)
Quarter: 2013Q2

REPORT INFORMATION
  Report Type: Spontaneous
  Country: BR (occurrence: None)
  Receive Date: 20130425
  Receipt Date: 20130501
  Transmission Date: 20140414
  Serious: Yes (Hospitalization)
  Sender: FDA-Public Use
  Company Number: BR-20130060

PATIENT
  Age: 42 Year
  Sex: Female

DRUGS (4)
  1. DOTAREM [Suspect]
     Indication: NUCLEAR MAGNETIC RESONANCE IMAGING BRAIN
     Dosage: 10 ML (10 ML, 1 IN 1 TOTAL), IV
     Route: 042
     Dates: start: 20130318, end: 20130318
  2. SALINE (SODIUM CHLORIDE) (0.9 %) (SODIUM CHLORIDE) [Concomitant]
  3. NEOSALDINA (METAMIZOLE, CAFFEINE, ISOMETHEPTENE) (METAMIZOLE, CAFFEINE, ISOMETHEPTENE) [Concomitant]
  4. METAMIZOLE (METAMIZOLE) (METAMIZOLE) [Concomitant]

REACTIONS (2)
  - Eye irritation [None]
  - Periorbital oedema [None]
